FAERS Safety Report 10091737 (Version 1)
Quarter: 2014Q2

REPORT INFORMATION
  Report Type: Spontaneous
  Country: US (occurrence: US)
  Receive Date: 20140421
  Receipt Date: 20140421
  Transmission Date: 20141212
  Serious: No
  Sender: FDA-Public Use
  Company Number: US-PURDUE-USA-2003-0010463

PATIENT
  Sex: Female

DRUGS (2)
  1. OXYIR [Suspect]
     Indication: PAIN
     Dosage: UNK MG, UNK
     Route: 065
  2. UNKNOWN [Concomitant]
     Indication: PRODUCT USED FOR UNKNOWN INDICATION
     Dosage: UNK UNK, UNK
     Route: 065

REACTIONS (2)
  - Nausea [Unknown]
  - Sedation [Unknown]
